FAERS Safety Report 8647708 (Version 2)
Quarter: 2013Q1

REPORT INFORMATION
  Report Type: Report from Study
  Country: JP (occurrence: JP)
  Receive Date: 20120703
  Receipt Date: 20130213
  Transmission Date: 20140127
  Serious: Yes (Hospitalization)
  Sender: FDA-Public Use
  Company Number: JP-ACTELION-A-CH2012-67722

PATIENT
  Age: 65 Year
  Sex: Male
  Weight: 62.5 kg

DRUGS (15)
  1. TRACLEER [Suspect]
     Indication: PULMONARY HYPERTENSION
     Dosage: 62.5 MG, BID
     Route: 048
     Dates: start: 20090913, end: 20091027
  2. TRACLEER [Suspect]
     Dosage: 31.25 MG, BID
     Route: 048
     Dates: start: 20090911, end: 20090912
  3. TRACLEER [Suspect]
     Dosage: 125 MG, BID
     Route: 048
     Dates: start: 20091028, end: 20100205
  4. TRACLEER [Suspect]
     Dosage: 62.5 MG, BID
     Route: 048
     Dates: start: 20100206, end: 20100215
  5. BERAPROST SODIUM [Concomitant]
  6. WARFARIN POTASSIUM [Concomitant]
  7. KETOPROFEN [Concomitant]
  8. BETAMETHASONE VALERATE [Concomitant]
  9. AZELNIDIPINE [Concomitant]
  10. CARBOCISTEINE [Concomitant]
  11. SANACTASE [Concomitant]
  12. URAPIDIL [Concomitant]
  13. OMEPRAZOLE [Concomitant]
  14. SODIUM GUALENATE [Concomitant]
  15. OXYGEN [Concomitant]

REACTIONS (7)
  - Hepatic function abnormal [Recovering/Resolving]
  - Renal failure [Recovering/Resolving]
  - Aspartate aminotransferase increased [Recovering/Resolving]
  - Alanine aminotransferase increased [Recovering/Resolving]
  - Gamma-glutamyltransferase increased [Recovering/Resolving]
  - Blood alkaline phosphatase increased [Recovering/Resolving]
  - Hyperuricaemia [Recovering/Resolving]
